FAERS Safety Report 6400138-3 (Version None)
Quarter: 2009Q4

REPORT INFORMATION
  Report Type: 
  Country: None (occurrence: None)
  Receive Date: 20091014
  Receipt Date: 20091002
  Transmission Date: 20100525
  Serious: Yes (Life-Threatening, Hospitalization, Other)
  Sender: FDA-Public Use
  Company Number: GR-PFIZER INC-2009277409

PATIENT
  Age: 43 Year

DRUGS (10)
  1. SUNITINIB MALATE [Suspect]
     Indication: RENAL CELL CARCINOMA
     Dosage: 50 MG, CYCLIC
     Route: 048
     Dates: start: 20090904
  2. LIPITOR [Concomitant]
     Dosage: 20 MG, UNK
     Route: 048
     Dates: start: 20090221
  3. XANAX [Concomitant]
     Dosage: 0.5
     Route: 048
     Dates: start: 20060101
  4. OLMESARTAN [Concomitant]
     Dosage: 20 MG, UNK
     Route: 048
     Dates: start: 20061018
  5. LOBIVON [Concomitant]
     Dosage: UNK
     Route: 048
     Dates: start: 20080331
  6. T4 [Concomitant]
     Dosage: 150 UNK, UNK
     Route: 048
     Dates: start: 20030101
  7. PARIET [Concomitant]
     Dosage: UNK
     Route: 048
  8. PLENDIL [Concomitant]
     Dosage: 5 MG, UNK
     Route: 048
     Dates: start: 20080512
  9. CIPRALEX [Concomitant]
     Dosage: UNK
     Route: 048
     Dates: start: 20090915
  10. OMACOR [Concomitant]
     Dosage: 1000 MG, UNK
     Route: 048
     Dates: start: 20090202

REACTIONS (1)
  - RENAL FAILURE ACUTE [None]
